FAERS Safety Report 22088847 (Version 1)
Quarter: 2023Q1

REPORT INFORMATION
  Report Type: Spontaneous
  Country: US (occurrence: None)
  Receive Date: 20230310
  Receipt Date: 20230310
  Transmission Date: 20230417
  Serious: Yes (Hospitalization, Other)
  Sender: FDA-Public Use
  Company Number: None

PATIENT
  Age: 55 Year
  Sex: Female
  Weight: 75.6 kg

DRUGS (1)
  1. OZEMPIC [Suspect]
     Active Substance: SEMAGLUTIDE

REACTIONS (9)
  - Abdominal pain [None]
  - Middle insomnia [None]
  - Back pain [None]
  - Nephrolithiasis [None]
  - Abdominal pain upper [None]
  - Pyrexia [None]
  - Cholelithiasis [None]
  - Gallbladder disorder [None]
  - White blood cell count increased [None]

NARRATIVE: CASE EVENT DATE: 20230302
